FAERS Safety Report 6566248-5 (Version None)
Quarter: 2010Q1

REPORT INFORMATION
  Report Type: 
  Country: None (occurrence: None)
  Receive Date: 20100202
  Receipt Date: 20100129
  Transmission Date: 20100710
  Serious: Yes (Death)
  Sender: FDA-Public Use
  Company Number: US-ASTRAZENECA-2010SE04113

PATIENT
  Age: 26 Year
  Sex: Female
  Weight: 49.9 kg

DRUGS (3)
  1. SEROQUEL [Suspect]
     Indication: ANGER
     Dosage: 25 MG THREE TIMES DURING DAY AND 300 MG AT BEDTIME
     Route: 048
     Dates: start: 20090501
  2. SEROQUEL [Suspect]
     Indication: ANXIETY
     Dosage: 25 MG THREE TIMES DURING DAY AND 300 MG AT BEDTIME
     Route: 048
     Dates: start: 20090501
  3. SEROQUEL [Suspect]
     Indication: BIPOLAR DISORDER
     Dosage: 25 MG THREE TIMES DURING DAY AND 300 MG AT BEDTIME
     Route: 048
     Dates: start: 20090501

REACTIONS (1)
  - SUDDEN CARDIAC DEATH [None]
